FAERS Safety Report 5849868-2 (Version None)
Quarter: 2008Q3

REPORT INFORMATION
  Report Type: 
  Country: None (occurrence: None)
  Receive Date: 20080818
  Receipt Date: 20080818
  Transmission Date: 20090109
  Serious: Yes (Other)
  Sender: FDA-Public Use
  Company Number: None

PATIENT
  Age: 39 Year
  Sex: Female
  Weight: 63.5036 kg

DRUGS (1)
  1. GRISEOFULVIN [Suspect]
     Indication: TINEA INFECTION
     Dosage: 1 TABLET DAILY PO, 1 WEEK -APPROX-
     Route: 048

REACTIONS (2)
  - DIZZINESS [None]
  - PYREXIA [None]
